FAERS Safety Report 4430519-9 (Version None)
Quarter: 2004Q3

REPORT INFORMATION
  Report Type: 
  Country: None (occurrence: None)
  Receive Date: 20040721
  Receipt Date: 20030919
  Transmission Date: 20050211
  Serious: Yes (Life-Threatening, Hospitalization)
  Sender: FDA-Public Use
  Company Number: OMPQ-PR-0309S-0814

PATIENT
  Age: 74 Year
  Sex: Female

DRUGS (2)
  1. OMNIPAQUE 180 [Suspect]
     Indication: DRUG USE FOR UNKNOWN INDICATION
     Dosage: 85 ML, SINGLE DOSE, I.V.
     Route: 042
     Dates: start: 20030919, end: 20030919
  2. OMNIPAQUE 180 [Suspect]

REACTIONS (3)
  - CONVULSION [None]
  - RESPIRATORY FAILURE [None]
  - VENTRICULAR TACHYCARDIA [None]
